FAERS Safety Report 6102500-5 (Version None)
Quarter: 2009Q1

REPORT INFORMATION
  Report Type: 
  Country: None (occurrence: None)
  Receive Date: 20090223
  Receipt Date: 20090209
  Transmission Date: 20090719
  Serious: Yes (Death)
  Sender: FDA-Public Use
  Company Number: THYM-1000899

PATIENT
  Age: 71 Year
  Sex: Male
  Weight: 71 kg

DRUGS (6)
  1. THYMOGLOBULIN [Suspect]
     Indication: APLASTIC ANAEMIA
     Dosage: 200 MG, QD, INTRAVENOUS
     Route: 042
     Dates: start: 20090120, end: 20090123
  2. METHYLPREDNISOLONE [Concomitant]
  3. ZOSYN [Concomitant]
  4. ITRACONAZOLE [Concomitant]
  5. ANTIBIOTICS [Concomitant]
  6. ANTIMICROBIAL (ANTIMICROBIAL) [Concomitant]

REACTIONS (13)
  - AEROMONA INFECTION [None]
  - ALANINE AMINOTRANSFERASE INCREASED [None]
  - ASPARTATE AMINOTRANSFERASE INCREASED [None]
  - ASPERGILLOSIS [None]
  - DEPRESSED LEVEL OF CONSCIOUSNESS [None]
  - GASTROINTESTINAL ULCER HAEMORRHAGE [None]
  - GENERALISED OEDEMA [None]
  - LARGE INTESTINAL ULCER HAEMORRHAGE [None]
  - MUSCLE HAEMORRHAGE [None]
  - MUSCLE NECROSIS [None]
  - NECROTISING FASCIITIS [None]
  - PULMONARY CONGESTION [None]
  - SEPSIS [None]
